FAERS Safety Report 7914367-0 (Version None)
Quarter: 2011Q4

REPORT INFORMATION
  Report Type: 
  Country: None (occurrence: None)
  Receive Date: 20111115
  Receipt Date: 20111102
  Transmission Date: 20120403
  Serious: Yes (Hospitalization)
  Sender: FDA-Public Use
  Company Number: US-ELI_LILLY_AND_COMPANY-US201109002597

PATIENT
  Sex: Female
  Weight: 53.515 kg

DRUGS (19)
  1. POTASSIUM [Concomitant]
  2. ASPIRIN [Concomitant]
  3. MULTI-VITAMIN [Concomitant]
  4. PRILOSEC [Concomitant]
  5. FUROSEMIDE [Concomitant]
     Dosage: 40 MG, UNK
  6. MORPHINE SULFATE [Concomitant]
     Dosage: 30 MG, UNK
  7. LEVOTHYROXINE SODIUM [Concomitant]
     Dosage: 100 MG, UNK
  8. CALCIUM [Concomitant]
  9. HYDROCORTISONE [Concomitant]
     Dosage: 20 MG, BID
  10. OXYCODONE HCL [Concomitant]
     Dosage: 325 MG, UNK
  11. HYDROMORPHONE HCL [Concomitant]
     Dosage: 4 MG, UNK
  12. LISINOPRIL [Concomitant]
     Indication: BLOOD PRESSURE ABNORMAL
     Dosage: 40 MG, UNK
  13. FOLIC ACID [Concomitant]
     Dosage: 1 MG, UNK
  14. VITAMIN D [Concomitant]
  15. FORTEO [Suspect]
     Indication: OSTEOPOROSIS
     Dosage: 20 UG, QD
     Route: 058
     Dates: start: 20110531, end: 20110820
  16. URSO 250 [Concomitant]
     Dosage: 250 MG, BID
  17. METOPROLOL [Concomitant]
     Dosage: 25 MG, UNK
  18. MIRAPEX [Concomitant]
     Dosage: 0.5 MG, UNK
  19. HYDROXYCHLOROQUINE SULFATE [Concomitant]

REACTIONS (3)
  - NAUSEA [None]
  - DEHYDRATION [None]
  - RENAL FAILURE ACUTE [None]
